FAERS Safety Report 6339542-0 (Version None)
Quarter: 2009Q3

REPORT INFORMATION
  Report Type: 
  Country: None (occurrence: None)
  Receive Date: 20090827
  Receipt Date: 20090709
  Transmission Date: 20100115
  Serious: Yes (Other)
  Sender: FDA-Public Use
  Company Number: 001237

PATIENT
  Sex: Female
  Weight: 73.9 kg

DRUGS (5)
  1. LACOSAMIDE [Suspect]
     Indication: CONVULSION
     Dosage: (50 MG BID ORAL)
     Route: 048
     Dates: start: 20090709
  2. KEPPRA [Suspect]
     Indication: CONVULSION
     Dosage: (750 MG BID ORAL), (1500 MG QD ORAL), (750 MG BID ORAL)
     Route: 048
     Dates: start: 20060101
  3. KEPPRA [Suspect]
     Indication: CONVULSION
     Dosage: (750 MG BID ORAL), (1500 MG QD ORAL), (750 MG BID ORAL)
     Route: 048
     Dates: start: 20060101
  4. KEPPRA [Suspect]
     Indication: CONVULSION
     Dosage: (750 MG BID ORAL), (1500 MG QD ORAL), (750 MG BID ORAL)
     Route: 048
     Dates: start: 20090501
  5. ZONEGRAN [Concomitant]

REACTIONS (2)
  - CONVULSION [None]
  - PETECHIAE [None]
